FAERS Safety Report 22173830 (Version 1)
Quarter: 2023Q2

REPORT INFORMATION
  Report Type: Spontaneous
  Country: US (occurrence: US)
  Receive Date: 20230404
  Receipt Date: 20230404
  Transmission Date: 20230722
  Serious: No
  Sender: FDA-Public Use
  Company Number: US-009507513-2303USA008780

PATIENT
  Sex: Female

DRUGS (2)
  1. BELSOMRA [Suspect]
     Active Substance: SUVOREXANT
     Indication: Sleep apnoea syndrome
     Dosage: 1 TABLET NIGHTLY, STRENGHT: 10 MG
     Route: 048
     Dates: start: 2019
  2. BELSOMRA [Suspect]
     Active Substance: SUVOREXANT
     Indication: Sleep apnoea syndrome
     Dosage: 1 TABLET NIGHTLY, STRENGHT: 15 MG
     Route: 048
     Dates: start: 2019

REACTIONS (6)
  - Gait inability [Not Recovered/Not Resolved]
  - Muscular weakness [Not Recovered/Not Resolved]
  - Product confusion [Unknown]
  - Overdose [Unknown]
  - Expired product administered [Unknown]
  - Product use in unapproved indication [Unknown]
